FAERS Safety Report 17299130 (Version 1)
Quarter: 2020Q1

REPORT INFORMATION
  Report Type: Spontaneous
  Country: US (occurrence: US)
  Receive Date: 20200103
  Receipt Date: 20200103
  Transmission Date: 20200409
  Serious: No
  Sender: FDA-Public Use
  Company Number: None

PATIENT
  Age: 52 Year
  Sex: Female

DRUGS (3)
  1. IBRANCE [Concomitant]
     Active Substance: PALBOCICLIB
     Route: 048
     Dates: start: 201911
  2. ANASTROZOLE. [Suspect]
     Active Substance: ANASTROZOLE
  3. PROLIA [Suspect]
     Active Substance: DENOSUMAB

REACTIONS (3)
  - Musculoskeletal stiffness [None]
  - Back pain [None]
  - Sciatica [None]

NARRATIVE: CASE EVENT DATE: 20200103
